FAERS Safety Report 16270483 (Version 1)
Quarter: 2019Q2

REPORT INFORMATION
  Report Type: Spontaneous
  Country: US (occurrence: US)
  Receive Date: 20190401
  Receipt Date: 20190401
  Transmission Date: 20190711
  Serious: No
  Sender: FDA-Public Use
  Company Number: None

PATIENT

DRUGS (1)
  1. ALBUTEROL NEBULIZER [Suspect]
     Active Substance: ALBUTEROL
     Dosage: ?          OTHER ROUTE:SOLUTION?

REACTIONS (2)
  - Inappropriate schedule of product administration [None]
  - Product dispensing error [None]
